FAERS Safety Report 5259258-1 (Version None)
Quarter: 2007Q1

REPORT INFORMATION
  Report Type: 
  Country: None (occurrence: None)
  Receive Date: 20070308
  Receipt Date: 20070302
  Transmission Date: 20070707
  Serious: Yes (Other)
  Sender: FDA-Public Use
  Company Number: 2007UW04020

PATIENT
  Age: 66 Year
  Sex: Female
  Weight: 61.2 kg

DRUGS (6)
  1. ARIMIDEX [Suspect]
     Indication: BREAST CANCER
     Route: 048
     Dates: end: 20070225
  2. SYNTHROID [Concomitant]
  3. LORAZEPAM [Concomitant]
  4. CALTRATE [Concomitant]
  5. ASPIRIN [Concomitant]
  6. VITAMIN CAP [Concomitant]

REACTIONS (12)
  - ARTHRALGIA [None]
  - CHILLS [None]
  - GAIT DISTURBANCE [None]
  - HYPOAESTHESIA [None]
  - INFECTION [None]
  - JOINT SWELLING [None]
  - METABOLIC DISORDER [None]
  - NEPHROLITHIASIS [None]
  - NIGHT SWEATS [None]
  - PYREXIA [None]
  - RASH GENERALISED [None]
  - URINARY TRACT INFECTION [None]
